FAERS Safety Report 12221078 (Version 1)
Quarter: 2016Q1

REPORT INFORMATION
  Report Type: Spontaneous
  Country: US (occurrence: None)
  Receive Date: 20160329
  Receipt Date: 20160329
  Transmission Date: 20160526
  Serious: No
  Sender: FDA-Public Use
  Company Number: None

PATIENT
  Age: 69 Year
  Sex: Male
  Weight: 103.4 kg

DRUGS (1)
  1. ASPIRIN. [Suspect]
     Active Substance: ASPIRIN
     Indication: CORONARY ARTERY DISEASE
     Route: 048
     Dates: start: 19990915, end: 20150824

REACTIONS (8)
  - Melaena [None]
  - Haemoglobin decreased [None]
  - Duodenal ulcer [None]
  - Erosive duodenitis [None]
  - Asthenia [None]
  - Duodenitis [None]
  - Gastritis erosive [None]
  - Dizziness [None]

NARRATIVE: CASE EVENT DATE: 20151028
